FAERS Safety Report 19637020 (Version 2)
Quarter: 2022Q1

REPORT INFORMATION
  Report Type: Spontaneous
  Country: US (occurrence: US)
  Receive Date: 20210730
  Receipt Date: 20220121
  Transmission Date: 20220423
  Serious: No
  Sender: FDA-Public Use
  Company Number: US-PFIZER INC-2021503917

PATIENT
  Age: 59 Year
  Sex: Female
  Weight: 79.365 kg

DRUGS (1)
  1. TOVIAZ [Suspect]
     Active Substance: FESOTERODINE FUMARATE
     Indication: Urinary incontinence
     Dosage: 4 MG, 1X/DAY
     Route: 048

REACTIONS (3)
  - Urinary incontinence [Unknown]
  - Frustration tolerance decreased [Unknown]
  - Intentional product misuse [Unknown]
